FAERS Safety Report 8246781-0 (Version None)
Quarter: 2012Q1

REPORT INFORMATION
  Report Type: 
  Country: None (occurrence: None)
  Receive Date: 20120330
  Receipt Date: 20120326
  Transmission Date: 20120608
  Serious: Yes (Death, Hospitalization, Other)
  Sender: FDA-Public Use
  Company Number: AU-PFIZER INC-2012048780

PATIENT
  Age: 62 Year
  Sex: Female

DRUGS (4)
  1. FRUSEMIDE [Concomitant]
     Dosage: UNK
     Route: 048
     Dates: end: 20120205
  2. TRACLEER [Concomitant]
     Indication: PULMONARY HYPERTENSION
     Dosage: 125 MG, 2X/DAY
     Route: 048
     Dates: start: 20101220, end: 20120205
  3. REVATIO [Suspect]
     Indication: PULMONARY HYPERTENSION
     Dosage: 20 MG, 3X/DAY
     Route: 048
     Dates: start: 20110201, end: 20120205
  4. SPIRONOLACTONE [Concomitant]
     Dosage: 25 MG, 2X/DAY
     Route: 048
     Dates: end: 20120205

REACTIONS (5)
  - SCLERODERMA [None]
  - UPPER GASTROINTESTINAL HAEMORRHAGE [None]
  - PULMONARY HYPERTENSION [None]
  - RIGHT VENTRICULAR FAILURE [None]
  - GASTROINTESTINAL TELANGIECTASIA [None]
